FAERS Safety Report 21894230 (Version 1)
Quarter: 2023Q1

REPORT INFORMATION
  Report Type: Spontaneous
  Country: US (occurrence: US)
  Receive Date: 20230121
  Receipt Date: 20230121
  Transmission Date: 20230418
  Serious: Yes (Other)
  Sender: FDA-Public Use
  Company Number: US-AUROBINDO-AUR-APL-2022-046866

PATIENT
  Age: 54 Year

DRUGS (1)
  1. CLOZAPINE [Suspect]
     Active Substance: CLOZAPINE
     Indication: Product used for unknown indication
     Dosage: UNK
     Route: 065
     Dates: start: 20220112

REACTIONS (2)
  - Neutropenia [Not Recovered/Not Resolved]
  - Neutrophilia [Unknown]

NARRATIVE: CASE EVENT DATE: 20220815
